FAERS Safety Report 13641709 (Version 1)
Quarter: 2017Q2

REPORT INFORMATION
  Report Type: Spontaneous
  Country: US (occurrence: US)
  Receive Date: 20170609
  Receipt Date: 20170609
  Transmission Date: 20170830
  Serious: Yes (Disabling, Other)
  Sender: FDA-Public Use
  Company Number: None

PATIENT
  Age: 41 Year
  Sex: Female
  Weight: 85.5 kg

DRUGS (1)
  1. MIBELAS 24 FE [Suspect]
     Active Substance: ETHINYL ESTRADIOL\NORETHINDRONE ACETATE
     Dates: start: 20150101, end: 20170601

REACTIONS (5)
  - Product use issue [None]
  - Emotional disorder [None]
  - Pregnancy on oral contraceptive [None]
  - Maternal exposure during pregnancy [None]
  - Abortion [None]

NARRATIVE: CASE EVENT DATE: 20160812
